FAERS Safety Report 6288578-7 (Version None)
Quarter: 2009Q3

REPORT INFORMATION
  Report Type: 
  Country: None (occurrence: None)
  Receive Date: 20090729
  Receipt Date: 20090722
  Transmission Date: 20100115
  Serious: Yes (Life-Threatening)
  Sender: FDA-Public Use
  Company Number: US-ASTRAZENECA-2009SE05567

PATIENT
  Age: 1 Month

DRUGS (1)
  1. LIDOCAINE [Suspect]
     Route: 042

REACTIONS (5)
  - ACCIDENTAL EXPOSURE [None]
  - CIRCULATORY COLLAPSE [None]
  - COMA [None]
  - CONVULSION [None]
  - RESPIRATORY ARREST [None]
